FAERS Safety Report 10078781 (Version 2)
Quarter: 2017Q4

REPORT INFORMATION
  Report Type: Spontaneous
  Country: CH (occurrence: CH)
  Receive Date: 20140415
  Receipt Date: 20171110
  Transmission Date: 20180320
  Serious: Yes (Hospitalization, Other)
  Sender: FDA-Public Use
  Company Number: CH-PFIZER INC-2014101584

PATIENT
  Age: 58 Year
  Sex: Male
  Weight: 85 kg

DRUGS (28)
  1. SERESTA [Suspect]
     Active Substance: OXAZEPAM
     Dosage: 15 MG, AS NEEDED
     Route: 048
     Dates: end: 20140305
  2. CELLCEPT [Concomitant]
     Active Substance: MYCOPHENOLATE MOFETIL\MYCOPHENOLATE MOFETIL HYDROCHLORIDE
     Dosage: 500 MG, 2X/DAY
     Route: 048
     Dates: start: 20140228
  3. JANUMET [Concomitant]
     Active Substance: METFORMIN HYDROCHLORIDE\SITAGLIPTIN PHOSPHATE
     Dosage: 500 MG, 2X/DAY
     Route: 048
     Dates: end: 20140307
  4. NADIROXISAN [Concomitant]
  5. LYRICA [Suspect]
     Active Substance: PREGABALIN
     Dosage: 50 MG, 3X/DAY
     Route: 048
     Dates: end: 20140307
  6. VFEND [Interacting]
     Active Substance: VORICONAZOLE
     Indication: PNEUMONIA FUNGAL
     Dosage: 300 MG, 2X/DAY
     Route: 048
     Dates: start: 20140225, end: 20140226
  7. VFEND [Interacting]
     Active Substance: VORICONAZOLE
     Dosage: 200 MG, 2X/DAY
     Route: 048
     Dates: start: 20140227, end: 20140311
  8. TRAMAL [Interacting]
     Active Substance: TRAMADOL
     Dosage: 50-62.5 MG 1 TO 4 TIMES DAILY
     Dates: start: 20140221, end: 20140307
  9. MORPHINE [Suspect]
     Active Substance: MORPHINE
     Dosage: 1 MG/H
     Route: 041
     Dates: start: 20140308, end: 20140310
  10. PROGRAF [Interacting]
     Active Substance: TACROLIMUS\TACROLIMUS ANHYDROUS
     Indication: PROPHYLAXIS AGAINST TRANSPLANT REJECTION
     Dosage: 0.5 MG, 2X/DAY
     Route: 048
     Dates: end: 20140306
  11. PREDNISONE. [Interacting]
     Active Substance: PREDNISONE
     Dosage: 5 MG, 1X/DAY
     Route: 048
  12. ASPIRINE [Concomitant]
     Active Substance: ASPIRIN
     Dosage: 100 MG, 1X/DAY
     Route: 048
  13. SYNAGIS [Suspect]
     Active Substance: PALIVIZUMAB
     Indication: RESPIRATORY SYNCYTIAL VIRUS INFECTION
     Dosage: 600 MG, UNK
     Route: 041
     Dates: start: 20140308, end: 20140308
  14. TRAMAL [Interacting]
     Active Substance: TRAMADOL
     Dosage: 62.5 MG, 3X/DAY
     Dates: end: 20140220
  15. COPEGUS [Suspect]
     Active Substance: RIBAVIRIN
     Dosage: 800 MG, 3X/DAY
     Route: 048
     Dates: start: 20140307
  16. PROGRAF [Interacting]
     Active Substance: TACROLIMUS\TACROLIMUS ANHYDROUS
     Dosage: 0.4 MG, 2X/DAY
     Route: 048
     Dates: start: 20140307
  17. PROGRAF [Interacting]
     Active Substance: TACROLIMUS\TACROLIMUS ANHYDROUS
     Dosage: UNK (NORMALISIED AGAIN)
     Route: 048
     Dates: start: 20140309
  18. INSULIN PORCINE [Concomitant]
     Active Substance: INSULIN PORK\INSULIN PURIFIED PORK
     Indication: DIABETES MELLITUS MANAGEMENT
     Dosage: UNK, AS NEEDED
     Route: 058
  19. ESOMEPRAZOLE [Concomitant]
     Active Substance: ESOMEPRAZOLE
     Dosage: 40 MG, 1X/DAY
     Route: 048
     Dates: start: 20140307
  20. SERESTA [Suspect]
     Active Substance: OXAZEPAM
     Dosage: UNK
     Dates: start: 20140308, end: 20140309
  21. CELLCEPT [Concomitant]
     Active Substance: MYCOPHENOLATE MOFETIL\MYCOPHENOLATE MOFETIL HYDROCHLORIDE
     Dosage: 1000 MG, 2X/DAY
     Route: 048
     Dates: end: 20140221
  22. AMLODIPINE [Concomitant]
     Active Substance: AMLODIPINE BESYLATE
     Dosage: 10 MG, 1X/DAY
     Route: 048
  23. PANTOZOL [Concomitant]
     Active Substance: PANTOPRAZOLE SODIUM
     Dosage: 40 MG, 2X/DAY
     Route: 048
     Dates: end: 20140307
  24. LISITRIL [Concomitant]
     Active Substance: LISINOPRIL
     Dosage: 15 MG, 1X/DAY
     Route: 048
     Dates: end: 20140307
  25. TEMESTA (LORAZEPAM) [Suspect]
     Active Substance: LORAZEPAM
     Dosage: 1 MG, AS NEEDED
     Route: 048
     Dates: start: 20140221, end: 20140309
  26. MERONEM [Suspect]
     Active Substance: MEROPENEM
     Indication: PNEUMONIA
     Dosage: 1 G, 3X/DAY
     Route: 041
     Dates: start: 20140307
  27. COPEGUS [Suspect]
     Active Substance: RIBAVIRIN
     Indication: PNEUMONIA VIRAL
     Dosage: 1200 MG, 3X/DAY
     Route: 048
     Dates: start: 20140226, end: 20140306
  28. MORPHINE [Suspect]
     Active Substance: MORPHINE
     Dosage: UNK
     Route: 041
     Dates: start: 20140307, end: 20140307

REACTIONS (13)
  - Aggression [Unknown]
  - Underdose [Recovered/Resolved]
  - Pneumonia viral [Unknown]
  - Agitation [Unknown]
  - Prescribed overdose [Unknown]
  - Withdrawal syndrome [Recovering/Resolving]
  - Incorrect dose administered [Recovered/Resolved]
  - Respiratory failure [Unknown]
  - Confusional state [Recovering/Resolving]
  - Off label use [Unknown]
  - Potentiating drug interaction [Unknown]
  - Renal impairment [Recovered/Resolved]
  - Blood creatinine increased [Unknown]

NARRATIVE: CASE EVENT DATE: 20140221
